FAERS Safety Report 8390380-7 (Version None)
Quarter: 2012Q2

REPORT INFORMATION
  Report Type: 
  Country: None (occurrence: None)
  Receive Date: 20120529
  Receipt Date: 20120523
  Transmission Date: 20120825
  Serious: No
  Sender: FDA-Public Use
  Company Number: US-PFIZER INC-2012125952

PATIENT
  Sex: Male
  Weight: 81.633 kg

DRUGS (2)
  1. DORZOLAMIDE HYDROCHLORIDE [Concomitant]
     Indication: GLAUCOMA
     Dosage: 1 GTT, 3X/DAY
     Dates: start: 20100101
  2. ATORVASTATIN CALCIUM [Suspect]
     Indication: BLOOD CHOLESTEROL INCREASED
     Dosage: 10 MG,DAILY
     Dates: start: 20120201, end: 20120514

REACTIONS (3)
  - MUSCLE SPASMS [None]
  - MUSCULAR WEAKNESS [None]
  - MUSCULOSKELETAL STIFFNESS [None]
